FAERS Safety Report 7131139-8 (Version None)
Quarter: 2010Q4

REPORT INFORMATION
  Report Type: 
  Country: None (occurrence: None)
  Receive Date: 20101201
  Receipt Date: 20101122
  Transmission Date: 20110411
  Serious: Yes (Hospitalization)
  Sender: FDA-Public Use
  Company Number: US-ASTRAZENECA-2010SE55806

PATIENT
  Age: 81 Year
  Sex: Male

DRUGS (2)
  1. SYMBICORT [Suspect]
     Indication: EMPHYSEMA
     Dosage: TOTAL DAILY DOSE 320 MCG, BID
     Route: 055
  2. SPIRIVA [Concomitant]

REACTIONS (3)
  - INTENTIONAL DRUG MISUSE [None]
  - INTESTINAL OBSTRUCTION [None]
  - JOINT DISLOCATION [None]
